FAERS Safety Report 23852044 (Version 1)
Quarter: 2024Q2

REPORT INFORMATION
  Report Type: Other
  Country: CN (occurrence: None)
  Receive Date: 20240514
  Receipt Date: 20240514
  Transmission Date: 20240716
  Serious: Yes (Death, Other)
  Sender: FDA-Public Use
  Company Number: CN-ROCHE-3561502

PATIENT

DRUGS (6)
  1. MYCOPHENOLATE MOFETIL [Suspect]
     Active Substance: MYCOPHENOLATE MOFETIL
     Indication: Prophylaxis against graft versus host disease
     Route: 065
  2. CYCLOPHOSPHAMIDE [Suspect]
     Active Substance: CYCLOPHOSPHAMIDE
     Indication: Prophylaxis against transplant rejection
     Route: 065
  3. FLUDARABINE [Suspect]
     Active Substance: FLUDARABINE PHOSPHATE
     Indication: Immunosuppression
     Route: 065
  4. CYCLOSPORINE [Suspect]
     Active Substance: CYCLOSPORINE
     Indication: Prophylaxis against graft versus host disease
     Route: 065
  5. METHOTREXATE [Suspect]
     Active Substance: METHOTREXATE
     Indication: Prophylaxis against graft versus host disease
     Route: 065
  6. ELTROMBOPAG [Suspect]
     Active Substance: ELTROMBOPAG
     Indication: Immunosuppression
     Route: 065

REACTIONS (10)
  - Septic shock [Fatal]
  - Infection [Fatal]
  - Respiratory failure [Fatal]
  - Pneumonia [Fatal]
  - Encephalitis viral [Unknown]
  - Cytomegalovirus viraemia [Unknown]
  - Pneumonia cytomegaloviral [Unknown]
  - Cytomegalovirus enteritis [Unknown]
  - Epstein-Barr virus infection [Unknown]
  - Epstein-Barr virus associated lymphoproliferative disorder [Unknown]
